FAERS Safety Report 21784177 (Version 1)
Quarter: 2022Q4

REPORT INFORMATION
  Report Type: Report from Study
  Country: CA (occurrence: CA)
  Receive Date: 20221227
  Receipt Date: 20221227
  Transmission Date: 20230113
  Serious: Yes (Death)
  Sender: FDA-Public Use
  Company Number: CA-MYLANLABS-2022M1145856

PATIENT
  Sex: Female
  Weight: 50.7 kg

DRUGS (1)
  1. OGIVRI [Suspect]
     Active Substance: TRASTUZUMAB-DKST
     Indication: Breast cancer metastatic
     Dosage: 325.5 MILLIGRAM (EVERY 3 WEEKS)
     Route: 042
     Dates: start: 20220804

REACTIONS (1)
  - Death [Fatal]
